FAERS Safety Report 21762967 (Version 1)
Quarter: 2022Q4

REPORT INFORMATION
  Report Type: Spontaneous
  Country: US (occurrence: US)
  Receive Date: 20221221
  Receipt Date: 20221221
  Transmission Date: 20230113
  Serious: No
  Sender: FDA-Public Use
  Company Number: US-KARYOPHARM-2022KPT001423

PATIENT

DRUGS (13)
  1. XPOVIO [Suspect]
     Active Substance: SELINEXOR
     Indication: Brain neoplasm malignant
     Dosage: 80 MG, WEEKLY
     Route: 048
     Dates: start: 20221128
  2. AMANTADINE [Concomitant]
     Active Substance: AMANTADINE
  3. AVAPRO [Concomitant]
     Active Substance: IRBESARTAN
  4. CLOBETASOL [Concomitant]
     Active Substance: CLOBETASOL
  5. ELIQUIS [Concomitant]
     Active Substance: APIXABAN
  6. ESCITALOPRAM [Concomitant]
     Active Substance: ESCITALOPRAM OXALATE
  7. FENTANYL [Concomitant]
     Active Substance: FENTANYL
  8. TRAMADOL [Concomitant]
     Active Substance: TRAMADOL
  9. OLANZAPINE [Concomitant]
     Active Substance: OLANZAPINE
  10. XANAX [Concomitant]
     Active Substance: ALPRAZOLAM
  11. TRIAMCINOLONE [Concomitant]
     Active Substance: TRIAMCINOLONE
  12. ONDANSETRON [Concomitant]
     Active Substance: ONDANSETRON
  13. OXYCONTIN [Concomitant]
     Active Substance: OXYCODONE HYDROCHLORIDE

REACTIONS (6)
  - Somnolence [Unknown]
  - Nausea [Not Recovered/Not Resolved]
  - Vomiting [Unknown]
  - Diarrhoea [Not Recovered/Not Resolved]
  - Fatigue [Not Recovered/Not Resolved]
  - Off label use [Unknown]

NARRATIVE: CASE EVENT DATE: 20220101
